FAERS Safety Report 17462336 (Version 1)
Quarter: 2020Q1

REPORT INFORMATION
  Report Type: Spontaneous
  Country: US (occurrence: US)
  Receive Date: 20200226
  Receipt Date: 20200226
  Transmission Date: 20200409
  Serious: Yes (Other)
  Sender: FDA-Public Use
  Company Number: US-PFIZER INC-2020083097

PATIENT

DRUGS (1)
  1. CHANTIX [Suspect]
     Active Substance: VARENICLINE TARTRATE
     Indication: SMOKING CESSATION THERAPY
     Dosage: UNK

REACTIONS (6)
  - Altered state of consciousness [Unknown]
  - Job dissatisfaction [Unknown]
  - Somnambulism [Unknown]
  - Nightmare [Unknown]
  - Abnormal dreams [Unknown]
  - Withdrawal syndrome [Unknown]
